FAERS Safety Report 4929137-5 (Version None)
Quarter: 2006Q1

REPORT INFORMATION
  Report Type: 
  Country: None (occurrence: None)
  Receive Date: 20060228
  Receipt Date: 20060228
  Transmission Date: 20060701
  Serious: Yes (Hospitalization)
  Sender: FDA-Public Use
  Company Number: None

PATIENT
  Age: 55 Year
  Sex: Female
  Weight: 71 kg

DRUGS (3)
  1. CUBICIN [Suspect]
     Indication: BACTERAEMIA
     Dosage: 400 MG DAILY IV
     Route: 042
     Dates: start: 20060215, end: 20060224
  2. CUBICIN [Suspect]
     Indication: STAPHYLOCOCCAL INFECTION
     Dosage: 400 MG DAILY IV
     Route: 042
     Dates: start: 20060215, end: 20060224
  3. COUMADIN [Concomitant]

REACTIONS (3)
  - DRUG INTERACTION [None]
  - INTERNATIONAL NORMALISED RATIO INCREASED [None]
  - RHABDOMYOLYSIS [None]
